FAERS Safety Report 24613071 (Version 1)
Quarter: 2024Q4

REPORT INFORMATION
  Report Type: Spontaneous
  Country: NL (occurrence: NL)
  Receive Date: 20241113
  Receipt Date: 20241113
  Transmission Date: 20250115
  Serious: Yes (Other)
  Sender: MYLAN
  Company Number: None

PATIENT
  Age: 82 Year
  Sex: Male
  Weight: 78.2 kg

DRUGS (10)
  1. CARBIDOPA\LEVODOPA [Suspect]
     Active Substance: CARBIDOPA\LEVODOPA
     Indication: Parkinson^s disease
     Dosage: 3.5 DOSAGE FORM, Q6H (4X DAILY 350/62.5MG (3 TBL 100/25 + 1 TBL 50/12.5))
     Route: 048
     Dates: start: 20190716
  2. CLOPIDOGREL [Concomitant]
     Active Substance: CLOPIDOGREL BISULFATE
     Dosage: 75 MILLIGRAM TABLET
     Route: 065
  3. DUTASTERIDE\TAMSULOSIN [Concomitant]
     Active Substance: DUTASTERIDE\TAMSULOSIN
     Dosage: UNK, CAPSULE, 0,5/0,4 MG (MILLIGRAM)
     Route: 065
  4. BENSERAZIDE\LEVODOPA [Concomitant]
     Active Substance: BENSERAZIDE\LEVODOPA
     Dosage: UNK, CAPSULE, 100/25 MG (MILLIGRAM)
     Route: 065
  5. CARBIDOPA\LEVODOPA [Concomitant]
     Active Substance: CARBIDOPA\LEVODOPA
     Dosage: UNK, REGULATED-RELEASE TABLET, 100/25 MG (MILLIGRAMS)
     Route: 065
  6. POLYETHYLENE GLYCOLS [Concomitant]
     Active Substance: POLYETHYLENE GLYCOLS
     Dosage: UNK, POWDER FOR DRINK (POWDER FOR DRINK IN SACHET)
     Route: 065
  7. PANTOPRAZOLE SODIUM [Concomitant]
     Active Substance: PANTOPRAZOLE SODIUM
     Dosage: 40 MILLIGRAM, GASTRO-RESISTANT TABLET
     Route: 065
  8. RIVASTIGMINE [Concomitant]
     Active Substance: RIVASTIGMINE
     Dosage: UNK, PLASTER
     Route: 065
  9. TELMISARTAN [Concomitant]
     Active Substance: TELMISARTAN
     Dosage: 80 MILLIGRAM TABLET
     Route: 065
  10. VERAPAMIL [Concomitant]
     Active Substance: VERAPAMIL HYDROCHLORIDE
     Dosage: 120 MILLIGRAM, REGULATED-RELEASE TABLET
     Route: 048

REACTIONS (2)
  - Polyneuropathy [Unknown]
  - Vitamin B6 deficiency [Unknown]
